FAERS Safety Report 4974411-X (Version None)
Quarter: 2006Q2

REPORT INFORMATION
  Report Type: 
  Country: None (occurrence: None)
  Receive Date: 20060410
  Receipt Date: 20060331
  Transmission Date: 20061013
  Serious: Yes (Hospitalization)
  Sender: FDA-Public Use
  Company Number: HQWYE608331MAR06

PATIENT
  Age: 58 Year
  Sex: Male

DRUGS (7)
  1. CORDARONE [Suspect]
     Indication: ARRHYTHMIA
     Dosage: 200 MG 1X PER 1 DAY
     Route: 048
     Dates: start: 20040813, end: 20050902
  2. LISINOPRIL [Concomitant]
  3. PLAVIX [Concomitant]
  4. CRESTOR [Concomitant]
  5. PANTOPRAZOLE SODIUM [Concomitant]
  6. BUMETANIDE [Concomitant]
  7. PROMOCARD (ISOSORBIDE MONONITRATE) [Concomitant]

REACTIONS (4)
  - ABDOMINAL DISTENSION [None]
  - ANGINA PECTORIS [None]
  - ERYTHEMA [None]
  - HYPOTHYROIDISM [None]
